FAERS Safety Report 12142640 (Version 1)
Quarter: 2016Q1

REPORT INFORMATION
  Report Type: Spontaneous
  Country: US (occurrence: US)
  Receive Date: 20160303
  Receipt Date: 20160303
  Transmission Date: 20160526
  Serious: No
  Sender: FDA-Public Use
  Company Number: CHPA2016US002746

PATIENT
  Age: 82 Year
  Sex: Female

DRUGS (1)
  1. VOLTAREN [Suspect]
     Active Substance: DICLOFENAC SODIUM
     Indication: MENISCUS INJURY
     Dosage: 2 G, QID
     Route: 061
     Dates: start: 20160203, end: 20160204

REACTIONS (3)
  - Peripheral swelling [Recovering/Resolving]
  - Incorrect dose administered [Unknown]
  - Drug ineffective for unapproved indication [Unknown]

NARRATIVE: CASE EVENT DATE: 20160203
